FAERS Safety Report 5220275-9 (Version None)
Quarter: 2006Q4

REPORT INFORMATION
  Report Type: 
  Country: None (occurrence: None)
  Receive Date: 20061201
  Receipt Date: 20060712
  Transmission Date: 20070319
  Serious: No
  Sender: FDA-Public Use
  Company Number: 2006PV017440

PATIENT
  Age: 61 Year
  Sex: Female
  Weight: 87.0906 kg

DRUGS (3)
  1. BYETTA [Suspect]
     Indication: DIABETES MELLITUS NON-INSULIN-DEPENDENT
     Dosage: 10 MCG;BID;SC
     Route: 058
     Dates: start: 20060704, end: 20060712
  2. GLIPIZIDE [Concomitant]
  3. ACTOS/GLUCOPHAGE [Concomitant]

REACTIONS (4)
  - ABDOMINAL PAIN UPPER [None]
  - CHILLS [None]
  - DIARRHOEA [None]
  - WEIGHT DECREASED [None]
